FAERS Safety Report 4620895-6 (Version None)
Quarter: 2005Q1

REPORT INFORMATION
  Report Type: 
  Country: None (occurrence: None)
  Receive Date: 20050325
  Receipt Date: 20050316
  Transmission Date: 20050727
  Serious: Yes (Hospitalization)
  Sender: FDA-Public Use
  Company Number: TCI2005A01628

PATIENT
  Sex: Female

DRUGS (4)
  1. ACTOS [Suspect]
     Indication: DIABETES MELLITUS NON-INSULIN-DEPENDENT
     Dosage: SEE IMAGE
     Route: 048
     Dates: start: 20030610, end: 20031117
  2. ACTOS [Suspect]
     Indication: DIABETES MELLITUS NON-INSULIN-DEPENDENT
     Dosage: SEE IMAGE
     Route: 048
     Dates: start: 20031118, end: 20040604
  3. BASEN TABLETS 0.2 (VOGLIBOSE) [Concomitant]
  4. GLYBURIDE [Concomitant]

REACTIONS (7)
  - BRAIN NATRIURETIC PEPTIDE INCREASED [None]
  - C-REACTIVE PROTEIN INCREASED [None]
  - INFECTION [None]
  - PLEURAL EFFUSION [None]
  - PYREXIA [None]
  - RESPIRATORY TRACT INFECTION [None]
  - WEIGHT INCREASED [None]
